FAERS Safety Report 10277466 (Version 1)
Quarter: 2014Q3

REPORT INFORMATION
  Report Type: Spontaneous
  Country: US (occurrence: US)
  Receive Date: 20140703
  Receipt Date: 20140703
  Transmission Date: 20150326
  Serious: Yes (Congenital Anomaly, Other)
  Sender: FDA-Public Use
  Company Number: US-RECKITT BENCKISER PHARMACEUTICAL, INC-RB-68891-2014

PATIENT

DRUGS (7)
  1. SUBUTEX [Suspect]
     Active Substance: BUPRENORPHINE HYDROCHLORIDE
     Indication: DRUG DEPENDENCE
     Dosage: 16 MG, DAILY
     Route: 064
     Dates: start: 200811, end: 20090710
  2. NICOTINE. [Suspect]
     Active Substance: NICOTINE
     Indication: NICOTINE DEPENDENCE
     Dosage: ONE UNIT DOSE DAILY, DOSING SCHEDULE-10
     Route: 064
     Dates: start: 200810, end: 20090710
  3. SUBUTEX [Suspect]
     Active Substance: BUPRENORPHINE HYDROCHLORIDE
     Dosage: 16 MG, DAILY
     Route: 063
     Dates: start: 20090710, end: 20090717
  4. LORCET [Suspect]
     Active Substance: ACETAMINOPHEN\HYDROCODONE BITARTRATE
     Indication: DRUG DEPENDENCE
     Dosage: 20 MG DAILY
     Route: 064
     Dates: end: 200811
  5. XANAX [Suspect]
     Active Substance: ALPRAZOLAM
     Dosage: 1 MG, QD
     Route: 063
     Dates: start: 20090710, end: 20090717
  6. XANAX [Suspect]
     Active Substance: ALPRAZOLAM
     Indication: ANXIETY
     Dosage: 1 MG, QD
     Route: 064
     Dates: start: 200810, end: 20090710
  7. NICOTINE. [Suspect]
     Active Substance: NICOTINE
     Dosage: ONE UNIT DOSE DAILY, DOSING SCHEDULE-10
     Route: 063
     Dates: start: 20090710, end: 20090717

REACTIONS (9)
  - Amblyopia [Recovered/Resolved]
  - Maternal drugs affecting foetus [None]
  - Muscle spasms [Recovered/Resolved]
  - Foetal exposure during pregnancy [Not Recovered/Not Resolved]
  - Crying [Recovered/Resolved]
  - Caesarean section [None]
  - Drug withdrawal syndrome neonatal [Recovered/Resolved]
  - Premature baby [Recovered/Resolved]
  - Diarrhoea [Recovered/Resolved]

NARRATIVE: CASE EVENT DATE: 200811
